FAERS Safety Report 18676566 (Version 1)
Quarter: 2020Q4

REPORT INFORMATION
  Report Type: Spontaneous
  Country: DE (occurrence: DE)
  Receive Date: 20201229
  Receipt Date: 20201229
  Transmission Date: 20210114
  Serious: Yes (Hospitalization)
  Sender: FDA-Public Use
  Company Number: DE-MYLANLABS-2020M1106323

PATIENT
  Age: 7 Year
  Sex: Female
  Weight: 34 kg

DRUGS (8)
  1. MERCAPTAMINE MYLAN [Suspect]
     Active Substance: CYSTEAMINE
     Indication: CYSTINOSIS
     Dosage: 10 DOSAGE FORM
     Route: 048
  2. MERCAPTAMINE MYLAN [Suspect]
     Active Substance: CYSTEAMINE
     Indication: CYSTINOSIS
     Dosage: UNK
     Route: 047
  3. COLECALCIFEROL [Suspect]
     Active Substance: CHOLECALCIFEROL
     Indication: PROPHYLAXIS
     Dosage: 1 DOSAGE FORM, QD
     Route: 048
  4. NITROFURANTOIN. [Suspect]
     Active Substance: NITROFURANTOIN
     Indication: URINARY TRACT INFECTION
     Dosage: 1 DOSAGE FORM, QD
     Route: 048
  5. POTASSIUM DIHYDROGEN PHOSPHATE [Suspect]
     Active Substance: POTASSIUM PHOSPHATE, MONOBASIC
     Indication: FANCONI SYNDROME ACQUIRED
     Dosage: 2 DOSAGE FORM, QD
     Route: 048
  6. OMEPRAZOLE. [Suspect]
     Active Substance: OMEPRAZOLE
     Indication: PROPHYLAXIS AGAINST GASTROINTESTINAL ULCER
     Dosage: 1 DOSAGE FORM, QD
     Route: 048
  7. SODIUM HYDROGEN CARBONATE [Suspect]
     Active Substance: SODIUM BICARBONATE
     Indication: FANCONI SYNDROME ACQUIRED
     Dosage: 3 DOSAGE FORM, QD 3 SEPARATE DOSES
     Route: 048
  8. SODIUM PHOSPHATE [Suspect]
     Active Substance: SODIUM PHOSPHATE
     Indication: FANCONI SYNDROME ACQUIRED
     Dosage: 2 DOSAGE FORM, QD
     Route: 048

REACTIONS (3)
  - Vomiting [Unknown]
  - Treatment noncompliance [Unknown]
  - Product administration error [Unknown]

NARRATIVE: CASE EVENT DATE: 20190807
